FAERS Safety Report 21155206 (Version 1)
Quarter: 2022Q3

REPORT INFORMATION
  Report Type: Spontaneous
  Country: US (occurrence: None)
  Receive Date: 20220731
  Receipt Date: 20220731
  Transmission Date: 20221027
  Serious: Yes (Other)
  Sender: FDA-Public Use
  Company Number: None

PATIENT
  Age: 68 Year
  Sex: Female
  Weight: 63 kg

DRUGS (11)
  1. LAGEVRIO [Suspect]
     Active Substance: MOLNUPIRAVIR
     Indication: COVID-19
     Dosage: FREQUENCY : TWICE A DAY;?
     Route: 048
     Dates: start: 20220730, end: 20220730
  2. Verapmil [Concomitant]
     Dates: start: 20100101
  3. Isosorbid [Concomitant]
     Dates: start: 20100101
  4. ASPIRIN [Concomitant]
     Active Substance: ASPIRIN
     Dates: start: 20070101
  5. VITAMIN D [Concomitant]
     Active Substance: VITAMIN D NOS
     Dates: start: 20120101
  6. FISH OIL [Concomitant]
     Active Substance: FISH OIL
     Dates: start: 20170101
  7. VITAMINS [Concomitant]
     Active Substance: VITAMINS
     Dates: start: 20190101
  8. VITAMIN C [Concomitant]
     Active Substance: ASCORBIC ACID
     Dates: start: 20210101
  9. TYLENOL [Concomitant]
     Active Substance: ACETAMINOPHEN
     Dates: start: 20220729
  10. LIPITOR [Concomitant]
     Active Substance: ATORVASTATIN CALCIUM
     Dates: start: 20210101
  11. Cozar/Lozartan [Concomitant]
     Dates: start: 20160101

REACTIONS (2)
  - Faeces discoloured [None]
  - Therapy interrupted [None]

NARRATIVE: CASE EVENT DATE: 20220730
